FAERS Safety Report 16244749 (Version 1)
Quarter: 2019Q2

REPORT INFORMATION
  Report Type: Spontaneous
  Country: GB (occurrence: GB)
  Receive Date: 20190426
  Receipt Date: 20190426
  Transmission Date: 20190711
  Serious: Yes (Life-Threatening)
  Sender: FDA-Public Use
  Company Number: GB-TEVA-2019-GB-1041797

PATIENT
  Age: 35 Year
  Sex: Male

DRUGS (1)
  1. ESOMEPRAZOLE SODIUM. [Suspect]
     Active Substance: ESOMEPRAZOLE SODIUM
     Route: 048
     Dates: end: 20190207

REACTIONS (2)
  - Abnormal loss of weight [Recovered/Resolved]
  - Vomiting [Recovered/Resolved]
